FAERS Safety Report 6151185-0 (Version None)
Quarter: 2009Q2

REPORT INFORMATION
  Report Type: 
  Country: None (occurrence: None)
  Receive Date: 20090407
  Receipt Date: 20090407
  Transmission Date: 20091009
  Serious: Yes (Hospitalization)
  Sender: FDA-Public Use
  Company Number: None

PATIENT
  Age: 46 Year
  Sex: Female
  Weight: 85.0041 kg

DRUGS (12)
  1. CISPLATIN [Suspect]
     Indication: NON-SMALL CELL LUNG CANCER
     Dosage: 56MG/M2, Q3WEEKS, IV
     Route: 042
     Dates: start: 20090326
  2. DOCETAXEL [Concomitant]
  3. CALCITRIOL [Concomitant]
  4. COLACE [Concomitant]
  5. NEULASTA [Concomitant]
  6. COMPAZINE [Concomitant]
  7. DEXAMETHASONE [Concomitant]
  8. LISINOPRIL [Concomitant]
  9. MIRALAX [Concomitant]
  10. PRILOSEC [Concomitant]
  11. SENOKOT [Concomitant]
  12. ZOFRAN [Concomitant]

REACTIONS (3)
  - DEHYDRATION [None]
  - NAUSEA [None]
  - VOMITING [None]
